FAERS Safety Report 4620661-1 (Version None)
Quarter: 2005Q1

REPORT INFORMATION
  Report Type: 
  Country: None (occurrence: None)
  Receive Date: 20050325
  Receipt Date: 20050316
  Transmission Date: 20050727
  Serious: Yes (Hospitalization)
  Sender: FDA-Public Use
  Company Number: TPA2005A00312

PATIENT
  Age: 68 Year
  Sex: Female
  Weight: 68.0396 kg

DRUGS (8)
  1. ACTOS [Suspect]
     Indication: DIABETES MELLITUS NON-INSULIN-DEPENDENT
     Dosage: 45 MG, 1 IN 1 D, PER ORAL
     Route: 048
     Dates: start: 20030315
  2. GLIPIZIDE [Suspect]
     Indication: DIABETES MELLITUS NON-INSULIN-DEPENDENT
     Dosage: 10 MG, 3 IN 1 D, PER ORAL
     Route: 048
  3. HUMULIN N [Suspect]
     Indication: BLOOD GLUCOSE INCREASED
     Dosage: 10 IU, QAM, SUBCUTANEOUS
     Route: 058
     Dates: start: 20041001
  4. GLYBURIDE [Suspect]
  5. PREMARIN [Concomitant]
  6. LIPITOR [Concomitant]
  7. METOPROLOL TARTRATE [Concomitant]
  8. DIGOXIN [Concomitant]

REACTIONS (4)
  - BLOOD GLUCOSE INCREASED [None]
  - CARDIAC DISORDER [None]
  - DRUG INEFFECTIVE [None]
  - NASOPHARYNGITIS [None]
